FAERS Safety Report 5895566-9 (Version None)
Quarter: 2008Q3

REPORT INFORMATION
  Report Type: 
  Country: None (occurrence: None)
  Receive Date: 20080924
  Receipt Date: 20080115
  Transmission Date: 20090109
  Serious: Yes (Hospitalization)
  Sender: FDA-Public Use
  Company Number: US-ASTRAZENECA-2006UW07969

PATIENT
  Sex: Female
  Weight: 65.8 kg

DRUGS (10)
  1. SEROQUEL [Suspect]
     Indication: SCHIZOPHRENIA
     Dosage: 25 MG - 100 MG
     Route: 048
     Dates: start: 20001101, end: 20050701
  2. SEROQUEL [Suspect]
     Indication: BIPOLAR DISORDER
     Dosage: 25 MG - 100 MG
     Route: 048
     Dates: start: 20001101, end: 20050701
  3. SEROQUEL [Suspect]
     Indication: DEPRESSION
     Dosage: 25 MG - 100 MG
     Route: 048
     Dates: start: 20001101, end: 20050701
  4. SEROQUEL [Suspect]
     Route: 048
     Dates: start: 20001101, end: 20050701
  5. SEROQUEL [Suspect]
     Route: 048
     Dates: start: 20001101, end: 20050701
  6. SEROQUEL [Suspect]
     Route: 048
     Dates: start: 20001101, end: 20050701
  7. ABILIFY [Concomitant]
     Dosage: 5 TO 25 MG
     Dates: start: 20000101
  8. GEODON [Concomitant]
     Dosage: 5 TO 25 MG
     Dates: start: 20000101
  9. RISPERDAL [Concomitant]
     Dosage: 5 TO 25 MG
     Dates: start: 20000101
  10. ZYPREXA [Concomitant]
     Dosage: 5 TO 25 MG
     Dates: start: 20000101

REACTIONS (3)
  - ANXIETY [None]
  - DIABETES MELLITUS [None]
  - HYPERGLYCAEMIA [None]
